FAERS Safety Report 15878185 (Version 3)
Quarter: 2019Q1

REPORT INFORMATION
  Report Type: Spontaneous
  Country: US (occurrence: US)
  Receive Date: 20190128
  Receipt Date: 20190329
  Transmission Date: 20190417
  Serious: No
  Sender: FDA-Public Use
  Company Number: US-PFIZER INC-2019036148

PATIENT
  Age: 83 Year
  Sex: Female
  Weight: 61 kg

DRUGS (123)
  1. GEMCITABINE HYDROCHLORIDE. [Suspect]
     Active Substance: GEMCITABINE HYDROCHLORIDE
     Dosage: 1300 MG, SINGLE
     Route: 040
     Dates: start: 20180228
  2. CARBOPLATIN. [Concomitant]
     Active Substance: CARBOPLATIN
     Dosage: 230 MG, SINGLE
     Route: 040
     Dates: start: 20190109
  3. CARBOPLATIN. [Concomitant]
     Active Substance: CARBOPLATIN
     Dosage: 230 MG, SINGLE
     Route: 040
     Dates: start: 20181205
  4. DEXAMETHASONE. [Concomitant]
     Active Substance: DEXAMETHASONE
     Dosage: 23 MG, UNK [ONCE 14 DAYS]
     Dates: start: 20180927
  5. DEXAMETHASONE. [Concomitant]
     Active Substance: DEXAMETHASONE
     Dosage: 23 MG, UNK [OVER 14 DAYS]
     Dates: start: 20180718
  6. FLUOROURACIL. [Concomitant]
     Active Substance: FLUOROURACIL
     Dosage: 800 MG, SINGLE
     Route: 040
     Dates: start: 20181025
  7. HEPARIN [Concomitant]
     Active Substance: HEPARIN SODIUM
     Dosage: 3000 IU, UNK [OVER 14 DAYS ]
     Dates: start: 20181219
  8. HEPARIN [Concomitant]
     Active Substance: HEPARIN SODIUM
     Dosage: 3000 IU, UNK [OVER 14 DAYS]
     Dates: start: 20180705
  9. NORMAL SALINE [Concomitant]
     Active Substance: SODIUM CHLORIDE
     Dosage: 30 ML, UNK [OVER 14 DAYS]
     Dates: start: 20180815
  10. NORMAL SALINE [Concomitant]
     Active Substance: SODIUM CHLORIDE
     Dosage: 30 ML, UNK [OVER 14 DAYS]
     Dates: start: 20180801
  11. NORMAL SALINE [Concomitant]
     Active Substance: SODIUM CHLORIDE
     Dosage: 30 ML, UNK [OVER 14 DAYS]
     Dates: start: 20180606
  12. NORMAL SALINE [Concomitant]
     Active Substance: SODIUM CHLORIDE
     Dosage: 30 ML, UNK [OVER 14 DAYS]
     Dates: start: 20180103
  13. OXALIPLATIN. [Concomitant]
     Active Substance: OXALIPLATIN
     Dosage: 100 MG, SINGLE
     Route: 040
     Dates: start: 20180314
  14. GEMCITABINE HYDROCHLORIDE. [Suspect]
     Active Substance: GEMCITABINE HYDROCHLORIDE
     Dosage: 1300 MG, SINGLE
     Route: 040
     Dates: start: 20180509
  15. GEMCITABINE HYDROCHLORIDE. [Suspect]
     Active Substance: GEMCITABINE HYDROCHLORIDE
     Dosage: 1300 MG, SINGLE
     Route: 040
     Dates: start: 20180131
  16. FLOXURIDINE. [Suspect]
     Active Substance: FLOXURIDINE
     Dosage: 100 MG, UNK (OVER 14 DAYS)
     Dates: start: 20180927
  17. FLOXURIDINE. [Suspect]
     Active Substance: FLOXURIDINE
     Dosage: 100 MG, UNK (OVER 14 DAYS)
     Dates: start: 20180801
  18. DEXAMETHASONE. [Concomitant]
     Active Substance: DEXAMETHASONE
     Dosage: 23 MG, UNK [ONCE 14 DAYS]
     Dates: start: 20190109
  19. DEXAMETHASONE. [Concomitant]
     Active Substance: DEXAMETHASONE
     Dosage: 23 MG, UNK  [OVER14 DAYS]
     Dates: start: 20181205
  20. DEXAMETHASONE. [Concomitant]
     Active Substance: DEXAMETHASONE
     Dosage: 23 MG, UNK [OVER 14 DAYS]
     Dates: start: 20180411
  21. FLUOROURACIL. [Concomitant]
     Active Substance: FLUOROURACIL
     Dosage: 650 MG, SINGLE
     Route: 040
     Dates: start: 20190109
  22. HEPARIN [Concomitant]
     Active Substance: HEPARIN SODIUM
     Dosage: 3000 IU, UNK [OVER 14 DAYS]
     Dates: start: 20180913
  23. HEPARIN [Concomitant]
     Active Substance: HEPARIN SODIUM
     Dosage: 3000 IU, UNK [OVER 14 DAYS]
     Dates: start: 20180718
  24. HEPARIN [Concomitant]
     Active Substance: HEPARIN SODIUM
     Dosage: 3000 IU, UNK [OVER 14 DAYS]
     Dates: start: 20180620
  25. NORMAL SALINE [Concomitant]
     Active Substance: SODIUM CHLORIDE
     Dosage: 30 ML, UNK [OVER 14 DAYS]
     Dates: start: 20181121
  26. NORMAL SALINE [Concomitant]
     Active Substance: SODIUM CHLORIDE
     Dosage: 30 ML, UNK [OVER 14 DAYS]
     Dates: start: 20180829
  27. NORMAL SALINE [Concomitant]
     Active Substance: SODIUM CHLORIDE
     Dosage: 30 ML, UNK [OVER 14 DAYS]
     Dates: start: 20180718
  28. NORMAL SALINE [Concomitant]
     Active Substance: SODIUM CHLORIDE
     Dosage: 30 ML, UNK [OVER 14 DAYS]
     Dates: start: 20180328
  29. NORMAL SALINE [Concomitant]
     Active Substance: SODIUM CHLORIDE
     Dosage: 30 ML, UNK [OVER 14 DAYS]
     Dates: start: 20180314
  30. GEMCITABINE HYDROCHLORIDE. [Suspect]
     Active Substance: GEMCITABINE HYDROCHLORIDE
     Dosage: 1300 MG, SINGLE
     Route: 040
     Dates: start: 20180606
  31. GEMCITABINE HYDROCHLORIDE. [Suspect]
     Active Substance: GEMCITABINE HYDROCHLORIDE
     Dosage: 1300 MG, SINGLE
     Route: 040
     Dates: start: 20180411
  32. FLOXURIDINE. [Suspect]
     Active Substance: FLOXURIDINE
     Dosage: 42 MG, UNK (OVER 14 DAYS)
     Dates: start: 20180705
  33. DEXAMETHASONE. [Concomitant]
     Active Substance: DEXAMETHASONE
     Dosage: 23 MG, UNK [OVER14 DAYS]
     Dates: start: 20180425
  34. DEXAMETHASONE. [Concomitant]
     Active Substance: DEXAMETHASONE
     Dosage: 23 MG, UNK [ONCE 14 DAYS]
     Dates: start: 20180314
  35. HEPARIN [Concomitant]
     Active Substance: HEPARIN SODIUM
     Dosage: 3000 IU, UNK [OVER 14 DAYS]
     Dates: start: 20181025
  36. HEPARIN [Concomitant]
     Active Substance: HEPARIN SODIUM
     Dosage: 3000 IU, UNK [OVER 14 DAYS]
     Dates: start: 20180927
  37. HEPARIN [Concomitant]
     Active Substance: HEPARIN SODIUM
     Dosage: 3000 IU, UNK [OVER 14 DAYS]
     Dates: start: 20180829
  38. HEPARIN [Concomitant]
     Active Substance: HEPARIN SODIUM
     Dosage: 3000 IU, UNK [OVER 14 DAYS]
     Dates: start: 20180815
  39. HEPARIN [Concomitant]
     Active Substance: HEPARIN SODIUM
     Dosage: 3000 IU, UNK [OVER 14 DAYS]
     Dates: start: 20180214
  40. HEPARIN [Concomitant]
     Active Substance: HEPARIN SODIUM
     Dosage: 3000 IU, UNK [OVER 14 DAYS]
     Dates: start: 20171222
  41. NORMAL SALINE [Concomitant]
     Active Substance: SODIUM CHLORIDE
     Dosage: 30 ML, UNK [OVER 14 DAYS]
     Dates: start: 20181219
  42. NORMAL SALINE [Concomitant]
     Active Substance: SODIUM CHLORIDE
     Dosage: 30 ML, UNK [OVER 14 DAYS]
     Dates: start: 20180705
  43. MITOMYCIN. [Concomitant]
     Active Substance: MITOMYCIN
     Dosage: 9.7 MG, SINGLE
     Dates: start: 20180829
  44. OXALIPLATIN. [Concomitant]
     Active Substance: OXALIPLATIN
     Dosage: 100 MG, SINGLE
     Route: 040
     Dates: start: 20180131
  45. GEMCITABINE HYDROCHLORIDE. [Suspect]
     Active Substance: GEMCITABINE HYDROCHLORIDE
     Indication: CHOLANGIOCARCINOMA
     Dosage: 1300 MG, SINGLE
     Route: 040
     Dates: start: 20180705
  46. GEMCITABINE HYDROCHLORIDE. [Suspect]
     Active Substance: GEMCITABINE HYDROCHLORIDE
     Dosage: 1300 MG, SINGLE
     Route: 040
     Dates: start: 20180314
  47. GEMCITABINE HYDROCHLORIDE. [Suspect]
     Active Substance: GEMCITABINE HYDROCHLORIDE
     Dosage: 1300 MG, SINGLE
     Route: 040
     Dates: start: 20180214
  48. FLOXURIDINE. [Suspect]
     Active Substance: FLOXURIDINE
     Dosage: 42 MG, UNK (OVER 14 DAYS)
     Dates: start: 20180425
  49. CARBOPLATIN. [Concomitant]
     Active Substance: CARBOPLATIN
     Dosage: 230 MG, SINGLE
     Route: 040
     Dates: start: 20181219
  50. DEXAMETHASONE. [Concomitant]
     Active Substance: DEXAMETHASONE
     Dosage: 23 MG, UNK [ONCE 14 DAYS]
     Dates: start: 20180228
  51. HEPARIN [Concomitant]
     Active Substance: HEPARIN SODIUM
     Dosage: 3000 IU, UNK [OVER 14 DAYS]
     Dates: start: 20181011
  52. HEPARIN [Concomitant]
     Active Substance: HEPARIN SODIUM
     Dosage: 3000 IU, UNK [OVER 14 DAYS]
     Dates: start: 20180103
  53. LEUCOVORIN [FOLINIC ACID] [Concomitant]
     Active Substance: LEUCOVORIN
     Dosage: 33 MG, SINGLE
     Route: 040
     Dates: start: 20181205
  54. NORMAL SALINE [Concomitant]
     Active Substance: SODIUM CHLORIDE
     Dosage: 30 ML, UNK [OVER 14 DAYS]
     Dates: start: 20181205
  55. NORMAL SALINE [Concomitant]
     Active Substance: SODIUM CHLORIDE
     Dosage: 30 ML, UNK [OVER 14 DAYS]
     Dates: start: 20181107
  56. NORMAL SALINE [Concomitant]
     Active Substance: SODIUM CHLORIDE
     Dosage: 30 ML, UNK [OVER 14 DAYS]
     Dates: start: 20181025
  57. NORMAL SALINE [Concomitant]
     Active Substance: SODIUM CHLORIDE
     Dosage: 30 ML, UNK [OVER 14 DAYS]
     Dates: start: 20180913
  58. NORMAL SALINE [Concomitant]
     Active Substance: SODIUM CHLORIDE
     Dosage: 30 ML, UNK [OVER 14 DAYS]
     Dates: start: 20180411
  59. NORMAL SALINE [Concomitant]
     Active Substance: SODIUM CHLORIDE
     Dosage: 30 ML, UNK [OVER 14 DAYS]
     Dates: start: 20180228
  60. NORMAL SALINE [Concomitant]
     Active Substance: SODIUM CHLORIDE
     Dosage: 30 ML, UNK [OVER 14 DAYS]
     Dates: start: 20180214
  61. NORMAL SALINE [Concomitant]
     Active Substance: SODIUM CHLORIDE
     Dosage: 30 ML, UNK [OVER 14 DAYS]
     Dates: start: 20171222
  62. GEMCITABINE HYDROCHLORIDE. [Suspect]
     Active Substance: GEMCITABINE HYDROCHLORIDE
     Dosage: 1300 MG, SINGLE
     Route: 040
     Dates: start: 20180328
  63. FLOXURIDINE. [Suspect]
     Active Substance: FLOXURIDINE
     Dosage: 169 MG, UNK (OVER 14 DAYS)
     Dates: start: 20180103
  64. CARBOPLATIN. [Concomitant]
     Active Substance: CARBOPLATIN
     Dosage: 310 MG, SINGLE
     Route: 040
     Dates: start: 20181107
  65. DEXAMETHASONE. [Concomitant]
     Active Substance: DEXAMETHASONE
     Dosage: 23 MG, UNK  [OVER14 DAYS]
     Dates: start: 20181219
  66. DEXAMETHASONE. [Concomitant]
     Active Substance: DEXAMETHASONE
     Dosage: 23 MG, UNK [OVER 14 DAYS]
     Dates: start: 20181025
  67. DEXAMETHASONE. [Concomitant]
     Active Substance: DEXAMETHASONE
     Dosage: 23 MG, UNK [OVER 14 DAYS]
     Dates: start: 20180913
  68. DEXAMETHASONE. [Concomitant]
     Active Substance: DEXAMETHASONE
     Dosage: 23 MG, UNK [OVER 14 DAYS]
     Dates: start: 20180801
  69. DEXAMETHASONE. [Concomitant]
     Active Substance: DEXAMETHASONE
     Dosage: 23 MG, UNK [OVER 14 DAYS]
     Dates: start: 20180705
  70. DEXAMETHASONE. [Concomitant]
     Active Substance: DEXAMETHASONE
     Dosage: 23 MG, UNK [OVER 14 DAYS]
     Dates: start: 20180815
  71. DEXAMETHASONE. [Concomitant]
     Active Substance: DEXAMETHASONE
     Dosage: 23 MG, UNK [OVER 14 DAYS]
     Dates: start: 20180509
  72. FLUOROURACIL. [Concomitant]
     Active Substance: FLUOROURACIL
     Dosage: 650 MG, SINGLE
     Route: 040
     Dates: start: 20181219
  73. HEPARIN [Concomitant]
     Active Substance: HEPARIN SODIUM
     Dosage: 3000 IU, UNK [OVER 14 DAYS]
     Dates: start: 20181107
  74. HEPARIN [Concomitant]
     Active Substance: HEPARIN SODIUM
     Dosage: 3000 IU, UNK [OVER 14 DAYS]
     Dates: start: 20180606
  75. HEPARIN [Concomitant]
     Active Substance: HEPARIN SODIUM
     Dosage: 3000 IU, UNK [OVER 14 DAYS]
     Dates: start: 20180328
  76. LEUCOVORIN [FOLINIC ACID] [Concomitant]
     Active Substance: LEUCOVORIN
     Dosage: 33 MG, SINGLE
     Route: 040
     Dates: start: 20181107
  77. NORMAL SALINE [Concomitant]
     Active Substance: SODIUM CHLORIDE
     Dosage: 30 ML, UNK [OVER 14 DAYS]
     Dates: start: 20180131
  78. MITOMYCIN. [Concomitant]
     Active Substance: MITOMYCIN
     Dosage: 9.7 MG, UNK [OVER 14 DAYS]
     Dates: start: 20180927
  79. OXALIPLATIN. [Concomitant]
     Active Substance: OXALIPLATIN
     Dosage: 100 MG, SINGLE
     Route: 040
     Dates: start: 20180214
  80. GEMCITABINE HYDROCHLORIDE. [Suspect]
     Active Substance: GEMCITABINE HYDROCHLORIDE
     Dosage: 1300 MG, SINGLE
     Route: 040
     Dates: start: 20180425
  81. CARBOPLATIN. [Concomitant]
     Active Substance: CARBOPLATIN
     Dosage: 310 MG, SINGLE
     Route: 040
     Dates: start: 20181025
  82. DEXAMETHASONE. [Concomitant]
     Active Substance: DEXAMETHASONE
     Dosage: 23 MG, UNK [OVER 14 DAYS]
     Dates: start: 20180214
  83. DEXAMETHASONE. [Concomitant]
     Active Substance: DEXAMETHASONE
     Dosage: 23 MG, UNK [OVER 14 DAYS]
     Dates: start: 20180117
  84. FLUOROURACIL. [Concomitant]
     Active Substance: FLUOROURACIL
     Dosage: 650 MG, SINGLE
     Route: 040
     Dates: start: 20181205
  85. HEPARIN [Concomitant]
     Active Substance: HEPARIN SODIUM
     Dosage: 3000 IU, UNK [OVER 14 DAYS ]
     Dates: start: 20190109
  86. HEPARIN [Concomitant]
     Active Substance: HEPARIN SODIUM
     Dosage: 3000 IU, UNK [OVER 14 DAYS]
     Dates: start: 20181205
  87. HEPARIN [Concomitant]
     Active Substance: HEPARIN SODIUM
     Dosage: 3000 IU, UNK [OVER 14 DAYS]
     Dates: start: 20181121
  88. HEPARIN [Concomitant]
     Active Substance: HEPARIN SODIUM
     Dosage: 3000 IU, UNK [OVER 14 DAYS]
     Dates: start: 20180425
  89. HEPARIN [Concomitant]
     Active Substance: HEPARIN SODIUM
     Dosage: 3000 IU, UNK [OVER 14 DAYS]
     Dates: start: 20180117
  90. HEPARIN [Concomitant]
     Active Substance: HEPARIN SODIUM
     Dosage: 3000 IU, UNK [OVER 14 DAYS]
     Dates: start: 20171215
  91. NORMAL SALINE [Concomitant]
     Active Substance: SODIUM CHLORIDE
     Dosage: 30 ML, UNK [OVER 14 DAYS]
     Dates: start: 20180425
  92. NORMAL SALINE [Concomitant]
     Active Substance: SODIUM CHLORIDE
     Dosage: 30 ML, UNK [OVER 14 DAYS]
     Dates: start: 20171215
  93. NORMAL SALINE [Concomitant]
     Active Substance: SODIUM CHLORIDE
     Dosage: 30 ML, UNK [OVER 14 DAYS]
     Dates: start: 20180620
  94. NORMAL SALINE [Concomitant]
     Active Substance: SODIUM CHLORIDE
     Dosage: 30 ML, UNK [OVER 14 DAYS]
     Dates: start: 20180509
  95. GEMCITABINE HYDROCHLORIDE. [Suspect]
     Active Substance: GEMCITABINE HYDROCHLORIDE
     Dosage: 1300 MG, SINGLE
     Route: 040
     Dates: start: 20180117
  96. FLOXURIDINE. [Suspect]
     Active Substance: FLOXURIDINE
     Dosage: 42 MG, UNK (OVER 14 DAYS)
     Dates: start: 20180606
  97. DEXAMETHASONE. [Concomitant]
     Active Substance: DEXAMETHASONE
     Dosage: 23 MG, UNK [OVER 14 DAYS]
     Dates: start: 20181107
  98. DEXAMETHASONE. [Concomitant]
     Active Substance: DEXAMETHASONE
     Dosage: 23 MG, UNK [OVER 14 DAYS]
     Dates: start: 20181011
  99. DEXAMETHASONE. [Concomitant]
     Active Substance: DEXAMETHASONE
     Dosage: 23 MG, UNK [OVER 14 DAYS]
     Dates: start: 20180131
  100. HEPARIN [Concomitant]
     Active Substance: HEPARIN SODIUM
     Dosage: 3000 IU, UNK [OVER 14 DAYS]
     Dates: start: 20180801
  101. HEPARIN [Concomitant]
     Active Substance: HEPARIN SODIUM
     Dosage: 3000 IU, UNK [OVER 14 DAYS]
     Dates: start: 20180411
  102. HEPARIN [Concomitant]
     Active Substance: HEPARIN SODIUM
     Dosage: 3000 IU, UNK [OVER 14 DAYS]
     Dates: start: 20180314
  103. HEPARIN [Concomitant]
     Active Substance: HEPARIN SODIUM
     Dosage: 3000 IU, UNK [OVER 14 DAYS]
     Dates: start: 20180228
  104. LEUCOVORIN [FOLINIC ACID] [Concomitant]
     Active Substance: LEUCOVORIN
     Dosage: 33 MG, SINGLE
     Route: 040
     Dates: start: 20190109
  105. LEUCOVORIN [FOLINIC ACID] [Concomitant]
     Active Substance: LEUCOVORIN
     Dosage: 33 MG, SINGLE
     Route: 040
     Dates: start: 20181025
  106. NORMAL SALINE [Concomitant]
     Active Substance: SODIUM CHLORIDE
     Dosage: 30 ML, UNK [OVER 14 DAYS]
     Dates: start: 20190109
  107. NORMAL SALINE [Concomitant]
     Active Substance: SODIUM CHLORIDE
     Dosage: 30 ML, UNK [OVER 14 DAYS]
     Dates: start: 20181011
  108. MITOMYCIN. [Concomitant]
     Active Substance: MITOMYCIN
     Dosage: 16 MG, SINGLE
     Dates: start: 20180801
  109. OXALIPLATIN. [Concomitant]
     Active Substance: OXALIPLATIN
     Dosage: 100 MG, SINGLE
     Route: 040
     Dates: start: 20180117
  110. GEMCITABINE HYDROCHLORIDE. [Suspect]
     Active Substance: GEMCITABINE HYDROCHLORIDE
     Dosage: 1300 MG, SINGLE
     Route: 040
     Dates: start: 20180620
  111. FLOXURIDINE. [Suspect]
     Active Substance: FLOXURIDINE
     Dosage: 100 MG, UNK (OVER 14 DAYS)
     Dates: start: 20180829
  112. DEXAMETHASONE. [Concomitant]
     Active Substance: DEXAMETHASONE
     Dosage: 23 MG, UNK [OVER 14 DAYS]
     Dates: start: 20181121
  113. DEXAMETHASONE. [Concomitant]
     Active Substance: DEXAMETHASONE
     Dosage: 23 MG, UNK [OVER 14 DAYS]
     Dates: start: 20180829
  114. DEXAMETHASONE. [Concomitant]
     Active Substance: DEXAMETHASONE
     Dosage: 23 MG, UNK [OVER 14 DAYS]
     Dates: start: 20180620
  115. DEXAMETHASONE. [Concomitant]
     Active Substance: DEXAMETHASONE
     Dosage: 23 MG, UNK [OVER 14 DAYS]
     Dates: start: 20180606
  116. DEXAMETHASONE. [Concomitant]
     Active Substance: DEXAMETHASONE
     Dosage: 23 MG, UNK [ONCE 14 DAYS]
     Dates: start: 20180328
  117. DEXAMETHASONE. [Concomitant]
     Active Substance: DEXAMETHASONE
     Dosage: 23 MG, UNK [ONCE 14 DAYS]
     Dates: start: 20180103
  118. FLUOROURACIL. [Concomitant]
     Active Substance: FLUOROURACIL
     Dosage: 800 MG, SINGLE
     Route: 040
     Dates: start: 20181107
  119. HEPARIN [Concomitant]
     Active Substance: HEPARIN SODIUM
     Dosage: 3000 IU, UNK [OVER 14 DAYS]
     Dates: start: 20180509
  120. HEPARIN [Concomitant]
     Active Substance: HEPARIN SODIUM
     Dosage: 3000 IU, UNK [OVER 14 DAYS]
     Dates: start: 20180131
  121. LEUCOVORIN [FOLINIC ACID] [Concomitant]
     Active Substance: LEUCOVORIN
     Dosage: 33 MG, SINGLE
     Route: 040
     Dates: start: 20181219
  122. NORMAL SALINE [Concomitant]
     Active Substance: SODIUM CHLORIDE
     Dosage: 30 ML, UNK [OVER 14 DAYS]
     Dates: start: 20180117
  123. OXALIPLATIN. [Concomitant]
     Active Substance: OXALIPLATIN
     Dosage: 100 MG, SINGLE
     Route: 040
     Dates: start: 20180228

REACTIONS (15)
  - Aspartate aminotransferase increased [Unknown]
  - Red cell distribution width increased [Unknown]
  - Platelet count decreased [Unknown]
  - Blood albumin decreased [Unknown]
  - Blood alkaline phosphatase increased [Unknown]
  - Immature granulocyte count increased [Unknown]
  - Blood glucose increased [Unknown]
  - Neoplasm progression [Unknown]
  - Mean cell haemoglobin [Unknown]
  - Protein total abnormal [Unknown]
  - Red blood cell count decreased [Unknown]
  - Haematocrit decreased [Unknown]
  - Mean cell volume increased [Unknown]
  - Haemoglobin decreased [Unknown]
  - Carbon dioxide decreased [Unknown]
